FAERS Safety Report 4435100-3 (Version None)
Quarter: 2004Q3

REPORT INFORMATION
  Report Type: 
  Country: None (occurrence: None)
  Receive Date: 20040826
  Receipt Date: 20040812
  Transmission Date: 20050211
  Serious: Yes (Hospitalization)
  Sender: FDA-Public Use
  Company Number: 2004UW16877

PATIENT
  Age: 23 Year
  Sex: Male
  Weight: 77 kg

DRUGS (10)
  1. SEROQUEL [Suspect]
     Indication: SCHIZOPHRENIA, PARANOID TYPE
     Dosage: 25 MG BID PO
     Route: 048
     Dates: start: 20040728, end: 20040728
  2. SEROQUEL [Suspect]
     Indication: SCHIZOPHRENIA, PARANOID TYPE
     Dosage: 50 MG BID PO
     Route: 048
     Dates: start: 20040729, end: 20040729
  3. SEROQUEL [Suspect]
     Indication: SCHIZOPHRENIA, PARANOID TYPE
     Dosage: 100 MG BID PO
     Route: 048
     Dates: start: 20040730, end: 20040730
  4. SEROQUEL [Suspect]
     Indication: SCHIZOPHRENIA, PARANOID TYPE
     Dosage: 150 MG BID PO
     Route: 048
     Dates: start: 20040731, end: 20040731
  5. SEROQUEL [Suspect]
     Indication: SCHIZOPHRENIA, PARANOID TYPE
     Dosage: 200 MG BID PO
     Route: 048
     Dates: start: 20040801, end: 20040803
  6. SEROQUEL [Suspect]
     Indication: SCHIZOPHRENIA, PARANOID TYPE
     Dosage: 300 MG BID PO
     Route: 048
     Dates: start: 20040804, end: 20040806
  7. SEROQUEL [Suspect]
     Indication: SCHIZOPHRENIA, PARANOID TYPE
     Dosage: 400 MG BID PO
     Route: 048
     Dates: start: 20040807
  8. DEPAKOTE [Concomitant]
  9. COGENTIN [Concomitant]
  10. CLONIDINE HCL [Concomitant]

REACTIONS (9)
  - AGGRESSION [None]
  - AGITATION [None]
  - CONDITION AGGRAVATED [None]
  - HYPOTENSION [None]
  - HYPOTHERMIA [None]
  - MENTAL STATUS CHANGES [None]
  - PARANOIA [None]
  - PSYCHOTIC DISORDER [None]
  - SUSPICIOUSNESS [None]
